FAERS Safety Report 15318906 (Version 1)
Quarter: 2018Q3

REPORT INFORMATION
  Report Type: Spontaneous
  Country: US (occurrence: US)
  Receive Date: 20180820
  Receipt Date: 20180820
  Transmission Date: 20181010
  Serious: No
  Sender: FDA-Public Use
  Company Number: None

PATIENT
  Sex: Female

DRUGS (11)
  1. URSODIOL. [Concomitant]
     Active Substance: URSODIOL
  2. LISINOPRIL. [Concomitant]
     Active Substance: LISINOPRIL
  3. ZINC SULFATE [Concomitant]
     Active Substance: ZINC SULFATE\ZINC SULFATE ANHYDROUS
  4. ATORVASTATIN [Concomitant]
     Active Substance: ATORVASTATIN
  5. MAGN SULFATE [Concomitant]
  6. OCALIVA [Suspect]
     Active Substance: OBETICHOLIC ACID
     Indication: PRIMARY BILIARY CHOLANGITIS
     Route: 048
     Dates: start: 20180721
  7. DULOXETINE. [Concomitant]
     Active Substance: DULOXETINE
  8. CALCIUM [Concomitant]
     Active Substance: CALCIUM
  9. HYDROXYZINE [Concomitant]
     Active Substance: HYDROXYZINE HYDROCHLORIDE
  10. METFORMIN [Concomitant]
     Active Substance: METFORMIN HYDROCHLORIDE
  11. CYMBALTA [Concomitant]
     Active Substance: DULOXETINE HYDROCHLORIDE

REACTIONS (7)
  - Weight increased [None]
  - Dizziness [None]
  - Fatigue [None]
  - Cough [None]
  - Arthralgia [None]
  - Pruritus [None]
  - Nausea [None]
